FAERS Safety Report 12602880 (Version 2)
Quarter: 2016Q3

REPORT INFORMATION
  Report Type: Spontaneous
  Country: JP (occurrence: JP)
  Receive Date: 20160728
  Receipt Date: 20160803
  Transmission Date: 20161109
  Serious: Yes (Death, Other)
  Sender: FDA-Public Use
  Company Number: PHJP2016JP021104

PATIENT
  Sex: Male

DRUGS (2)
  1. GLIVEC [Suspect]
     Active Substance: IMATINIB MESYLATE
     Dosage: 800 MG, UNK
     Route: 048
  2. GLIVEC [Suspect]
     Active Substance: IMATINIB MESYLATE
     Indication: GASTROINTESTINAL STROMAL TUMOUR
     Dosage: UNK
     Route: 048

REACTIONS (12)
  - Impaired healing [Unknown]
  - Muscle spasms [Unknown]
  - Ocular hyperaemia [Unknown]
  - Lethargy [Unknown]
  - Death [Fatal]
  - Recurrent cancer [Unknown]
  - Nausea [Unknown]
  - Drug resistance [Unknown]
  - Oedema [Unknown]
  - Gastrointestinal stromal tumour [Unknown]
  - Postoperative ileus [Unknown]
  - Skin discolouration [Unknown]
